FAERS Safety Report 19321383 (Version 1)
Quarter: 2021Q2

REPORT INFORMATION
  Report Type: Spontaneous
  Country: MX (occurrence: MX)
  Receive Date: 20210528
  Receipt Date: 20210528
  Transmission Date: 20210717
  Serious: Yes (Other)
  Sender: FDA-Public Use
  Company Number: MX-ROCHE-2837445

PATIENT
  Age: 58 Year
  Sex: Female

DRUGS (11)
  1. LEVOTHYROXINE. [Concomitant]
     Active Substance: LEVOTHYROXINE
  2. BEVACIZUMAB. [Suspect]
     Active Substance: BEVACIZUMAB
     Dosage: DOSE AND FREQUENCY WERE NOT REPORTED ? 4 CYCLES
     Route: 065
     Dates: start: 20210224, end: 20210428
  3. PACLITAXEL. [Concomitant]
     Active Substance: PACLITAXEL
     Dosage: DOSE AND FREQUENCY WERE NOT REPORTED ? 4 CYCLES
     Dates: start: 20210224, end: 20210428
  4. TECENTRIQ [Suspect]
     Active Substance: ATEZOLIZUMAB
     Indication: LUNG ADENOCARCINOMA
     Dosage: FREQUENCY WAS NOT REPORTED ? 4 CYCLES
     Route: 065
     Dates: start: 20200908
  5. BEVACIZUMAB. [Suspect]
     Active Substance: BEVACIZUMAB
     Dosage: DOSE AND FREQUENCY WAS NOT REPORTED ? MAINTENANCE CYCLE
     Route: 065
     Dates: start: 20201202
  6. PACLITAXEL. [Concomitant]
     Active Substance: PACLITAXEL
     Indication: LUNG ADENOCARCINOMA
     Dosage: FREQUENCY WAS NOT REPORTED ? 4 CYCLES
     Dates: start: 20200908
  7. TECENTRIQ [Suspect]
     Active Substance: ATEZOLIZUMAB
     Dosage: DOSE AND FREQUENCY WAS NOT REPORTED ? MAINTENANCE CYCLE
     Route: 065
     Dates: start: 20201202
  8. CARBOPLATIN. [Concomitant]
     Active Substance: CARBOPLATIN
     Dosage: DOSE AND FREQUENCY WERE NOT REPORTED ? 4 CYCLES
     Dates: start: 20210224, end: 20210428
  9. TECENTRIQ [Suspect]
     Active Substance: ATEZOLIZUMAB
     Dosage: DOSE AND FREQUENCY WERE NOT REPORTED ? 4 CYCLES
     Route: 065
     Dates: start: 20210224, end: 20210428
  10. BEVACIZUMAB. [Suspect]
     Active Substance: BEVACIZUMAB
     Indication: LUNG ADENOCARCINOMA
     Dosage: FREQUENCY WAS NOT REPORTED ? 4 CYCLES
     Route: 065
     Dates: start: 20200908
  11. CARBOPLATIN. [Concomitant]
     Active Substance: CARBOPLATIN
     Indication: LUNG ADENOCARCINOMA
     Dosage: FREQUENCY WAS NOT REPORTED ? 4 CYCLES
     Dates: start: 20200908

REACTIONS (5)
  - Hypothyroidism [Unknown]
  - Fatigue [Unknown]
  - Hepatotoxicity [Unknown]
  - Neuropathy peripheral [Unknown]
  - Blood cholinesterase decreased [Unknown]
